FAERS Safety Report 9631608 (Version 2)
Quarter: 2013Q4

REPORT INFORMATION
  Report Type: Spontaneous
  Country: US (occurrence: US)
  Receive Date: 20131018
  Receipt Date: 20131107
  Transmission Date: 20140711
  Serious: No
  Sender: FDA-Public Use
  Company Number: US-PFIZER INC-2013295921

PATIENT
  Age: 49 Year
  Sex: Female
  Weight: 91.61 kg

DRUGS (3)
  1. CELEBREX [Suspect]
     Dosage: 50 MG, DAILY
     Dates: start: 201101, end: 2011
  2. PRISTIQ [Suspect]
     Indication: DEPRESSION
     Dosage: 50 MG, DAILY
     Dates: start: 2011
  3. METFORMIN [Concomitant]
     Indication: DIABETES MELLITUS
     Dosage: 500 MG, DAILY

REACTIONS (3)
  - Agitation [Recovered/Resolved]
  - Depression [Recovered/Resolved]
  - Blood cholesterol increased [Unknown]
